FAERS Safety Report 14020819 (Version 1)
Quarter: 2017Q3

REPORT INFORMATION
  Report Type: Spontaneous
  Country: CA (occurrence: CA)
  Receive Date: 20170928
  Receipt Date: 20170928
  Transmission Date: 20171128
  Serious: Yes (Life-Threatening, Hospitalization)
  Sender: FDA-Public Use
  Company Number: CA-BAYER-2017-182470

PATIENT
  Age: 69 Year
  Sex: Male

DRUGS (3)
  1. HEPARIN [Interacting]
     Active Substance: HEPARIN SODIUM
  2. TICAGRELOR. [Interacting]
     Active Substance: TICAGRELOR
  3. ACETYLSALICYLIC ACID({=100 MG) [Suspect]
     Active Substance: ASPIRIN

REACTIONS (4)
  - Labelled drug-drug interaction medication error [None]
  - Haemoptysis [None]
  - Bronchial haemorrhage [None]
  - Drug administration error [None]
